FAERS Safety Report 13795732 (Version 1)
Quarter: 2017Q3

REPORT INFORMATION
  Report Type: Spontaneous
  Country: FR (occurrence: FR)
  Receive Date: 20170726
  Receipt Date: 20170726
  Transmission Date: 20171127
  Serious: Yes (Death, Other)
  Sender: FDA-Public Use
  Company Number: PHHY2017FR108704

PATIENT
  Age: 46 Year
  Sex: Female

DRUGS (3)
  1. PEMETREXED. [Suspect]
     Active Substance: PEMETREXED
     Indication: SUPERIOR VENA CAVA SYNDROME
     Route: 065
  2. PACLITAXEL. [Suspect]
     Active Substance: PACLITAXEL
     Indication: SUPERIOR VENA CAVA SYNDROME
     Route: 065
  3. CARBOPLATIN. [Suspect]
     Active Substance: CARBOPLATIN
     Indication: SUPERIOR VENA CAVA SYNDROME
     Route: 065

REACTIONS (11)
  - General physical health deterioration [Unknown]
  - Dyspnoea [Unknown]
  - Dysphagia [Unknown]
  - Drug ineffective [Unknown]
  - Chest pain [Unknown]
  - Vasodilatation [Unknown]
  - Mediastinal mass [Unknown]
  - Disease progression [Fatal]
  - Neuropathy peripheral [Unknown]
  - Disease recurrence [Unknown]
  - Therapy partial responder [Unknown]
